FAERS Safety Report 7272455-9 (Version None)
Quarter: 2011Q1

REPORT INFORMATION
  Report Type: 
  Country: None (occurrence: None)
  Receive Date: 20110203
  Receipt Date: 20110126
  Transmission Date: 20110831
  Serious: Yes (Hospitalization)
  Sender: FDA-Public Use
  Company Number: BE-ROCHE-701083

PATIENT
  Sex: Female

DRUGS (3)
  1. OXALIPLATIN [Suspect]
     Indication: RECTAL CANCER
     Dosage: LAST DOSE PRIOR TO SAE: 30 APRIL 2010,
     Route: 042
     Dates: start: 20100407
  2. CAPECITABINE [Suspect]
     Indication: RECTAL CANCER
     Dosage: LAST DOSE PRIOR TO SAE: 30 APRIL 2010, EVENING DOSE
     Route: 048
     Dates: start: 20100407
  3. MOVICOL [Concomitant]
     Indication: CONSTIPATION
     Dosage: DOSE: WHEN NEEDED
     Dates: start: 20100405, end: 20100421

REACTIONS (1)
  - RADIATION INJURY [None]
